FAERS Safety Report 7467097-6 (Version None)
Quarter: 2011Q2

REPORT INFORMATION
  Report Type: 
  Country: None (occurrence: None)
  Receive Date: 20110509
  Receipt Date: 20101020
  Transmission Date: 20111010
  Serious: No
  Sender: FDA-Public Use
  Company Number: US-ALEXION-A201001338

PATIENT
  Sex: Female

DRUGS (5)
  1. FOSAMAX [Concomitant]
     Indication: BONE DENSITY DECREASED
     Dosage: 70 MG, QW
     Route: 048
  2. CYCLOSPORINE [Concomitant]
     Dosage: 125 MG, QD
     Route: 048
  3. ZESTRIL [Concomitant]
     Indication: HYPERTENSION
     Dosage: 40 MG, QD
     Route: 048
  4. ZYRTEC [Concomitant]
     Dosage: UNK
     Route: 048
  5. SOLIRIS [Suspect]
     Indication: PAROXYSMAL NOCTURNAL HAEMOGLOBINURIA
     Dosage: 900 MG, Q2W
     Route: 042

REACTIONS (3)
  - HYPERSENSITIVITY [None]
  - CONDITION AGGRAVATED [None]
  - RESPIRATORY TRACT INFECTION [None]
